FAERS Safety Report 8398773-9 (Version None)
Quarter: 2012Q2

REPORT INFORMATION
  Report Type: 
  Country: None (occurrence: None)
  Receive Date: 20120531
  Receipt Date: 20120518
  Transmission Date: 20120825
  Serious: No
  Sender: FDA-Public Use
  Company Number: US-ASTRAZENECA-2012SE32393

PATIENT

DRUGS (1)
  1. ZOMIG [Suspect]
     Route: 048

REACTIONS (2)
  - MIGRAINE [None]
  - MALAISE [None]
